FAERS Safety Report 21375008 (Version 1)
Quarter: 2022Q3

REPORT INFORMATION
  Report Type: Spontaneous
  Country: US (occurrence: None)
  Receive Date: 20220923
  Receipt Date: 20220923
  Transmission Date: 20221026
  Serious: No
  Sender: FDA-Public Use
  Company Number: None

PATIENT
  Age: 53 Year
  Sex: Female
  Weight: 85.5 kg

DRUGS (1)
  1. KIMYRSA [Suspect]
     Active Substance: ORITAVANCIN DIPHOSPHATE
     Indication: Osteomyelitis
     Dosage: FREQUENCY : ONCE;?
     Route: 042

REACTIONS (4)
  - Chills [None]
  - Nausea [None]
  - Vomiting [None]
  - Infusion related reaction [None]

NARRATIVE: CASE EVENT DATE: 20220909
